FAERS Safety Report 7391149-2 (Version None)
Quarter: 2011Q2

REPORT INFORMATION
  Report Type: 
  Country: None (occurrence: None)
  Receive Date: 20110404
  Receipt Date: 20110330
  Transmission Date: 20111010
  Serious: Yes (Other)
  Sender: FDA-Public Use
  Company Number: US-AMGEN-USASP2011011555

PATIENT
  Age: 70 Year
  Sex: Female
  Weight: 61.95 kg

DRUGS (2)
  1. PROLIA [Suspect]
     Indication: OSTEOPOROSIS POSTMENOPAUSAL
     Dosage: 60 MG, Q6MO
     Route: 030
     Dates: start: 20110316
  2. ANTIBIOTICS [Concomitant]

REACTIONS (4)
  - RESPIRATORY TRACT INFECTION [None]
  - SINUSITIS [None]
  - URINARY TRACT INFECTION [None]
  - BEDRIDDEN [None]
